FAERS Safety Report 21082038 (Version 5)
Quarter: 2022Q3

REPORT INFORMATION
  Report Type: Report from Study
  Country: MY (occurrence: MY)
  Receive Date: 20220714
  Receipt Date: 20220921
  Transmission Date: 20221027
  Serious: Yes (Other)
  Sender: FDA-Public Use
  Company Number: MY-NOVARTISPH-NVSC2021MY295209

PATIENT
  Sex: Female

DRUGS (2)
  1. COSENTYX [Suspect]
     Active Substance: SECUKINUMAB
     Indication: Psoriasis
     Dosage: 300 MG
     Route: 058
     Dates: start: 20211216
  2. COSENTYX [Suspect]
     Active Substance: SECUKINUMAB
     Dosage: 300 MG
     Route: 058
     Dates: start: 20220906

REACTIONS (18)
  - Eye haemorrhage [Unknown]
  - Pruritus [Not Recovered/Not Resolved]
  - Ocular hyperaemia [Recovering/Resolving]
  - Eye swelling [Not Recovered/Not Resolved]
  - Blister [Unknown]
  - Swelling [Unknown]
  - Pain [Unknown]
  - Ocular discomfort [Unknown]
  - Trismus [Unknown]
  - Pain in jaw [Unknown]
  - Swelling face [Unknown]
  - Mouth ulceration [Unknown]
  - Pyrexia [Recovering/Resolving]
  - Cough [Recovering/Resolving]
  - Asthenia [Unknown]
  - Lethargy [Unknown]
  - Lacrimation increased [Unknown]
  - Dizziness [Unknown]
